FAERS Safety Report 17465896 (Version 1)
Quarter: 2020Q1

REPORT INFORMATION
  Report Type: Spontaneous
  Country: US (occurrence: US)
  Receive Date: 20200227
  Receipt Date: 20200227
  Transmission Date: 20200409
  Serious: No
  Sender: FDA-Public Use
  Company Number: US-TEVA-2020-US-1189632

PATIENT

DRUGS (1)
  1. DOCETAXEL. [Suspect]
     Active Substance: DOCETAXEL
     Dosage: 6 CYCLES
     Route: 065
     Dates: start: 20170705, end: 20171018

REACTIONS (2)
  - Alopecia [Unknown]
  - Hair growth abnormal [Unknown]
